FAERS Safety Report 19865433 (Version 1)
Quarter: 2021Q3

REPORT INFORMATION
  Report Type: Spontaneous
  Country: US (occurrence: US)
  Receive Date: 20210921
  Receipt Date: 20210921
  Transmission Date: 20211014
  Serious: Yes (Hospitalization)
  Sender: FDA-Public Use
  Company Number: None

PATIENT
  Age: 58 Year
  Sex: Female

DRUGS (12)
  1. SPIRONOLACT [Concomitant]
     Active Substance: SPIRONOLACTONE
  2. ROBITUSSIN (GUAIFENESIN) [Concomitant]
     Active Substance: GUAIFENESIN
  3. METOPIRONE [Concomitant]
     Active Substance: METYRAPONE
  4. TYLENOL [Concomitant]
     Active Substance: ACETAMINOPHEN
  5. FAMOTIDINE. [Concomitant]
     Active Substance: FAMOTIDINE
  6. OLMESA MEDOX [Concomitant]
  7. VIRTUSSIN [Concomitant]
  8. AFINITOR [Concomitant]
     Active Substance: EVEROLIMUS
  9. KETOCONAZOLE. [Concomitant]
     Active Substance: KETOCONAZOLE
  10. METOPROLOL TARTRATE. [Concomitant]
     Active Substance: METOPROLOL TARTRATE
  11. KEPPRA [Concomitant]
     Active Substance: LEVETIRACETAM
  12. METOPIRONE [Suspect]
     Active Substance: METYRAPONE
     Indication: CUSHING^S SYNDROME
     Route: 048

REACTIONS (7)
  - Therapy interrupted [None]
  - Drug level increased [None]
  - Product prescribing issue [None]
  - Product distribution issue [None]
  - Drug interaction [None]
  - Electrolyte imbalance [None]
  - Blood potassium decreased [None]

NARRATIVE: CASE EVENT DATE: 20210915
